FAERS Safety Report 19967123 (Version 2)
Quarter: 2021Q4

REPORT INFORMATION
  Report Type: Report from Study
  Country: AR (occurrence: AR)
  Receive Date: 20211019
  Receipt Date: 20211112
  Transmission Date: 20220303
  Serious: Yes (Hospitalization)
  Sender: FDA-Public Use
  Company Number: AR-JNJFOC-20211023906

PATIENT
  Age: 66 Year
  Sex: Female
  Weight: 46 kg

DRUGS (1)
  1. SIMPONI [Suspect]
     Active Substance: GOLIMUMAB
     Indication: Rheumatoid arthritis
     Route: 042
     Dates: start: 20201201

REACTIONS (1)
  - Rectal haemorrhage [Not Recovered/Not Resolved]

NARRATIVE: CASE EVENT DATE: 20210901
